FAERS Safety Report 11087147 (Version 2)
Quarter: 2015Q2

REPORT INFORMATION
  Report Type: Spontaneous
  Country: NL (occurrence: None)
  Receive Date: 20150430
  Receipt Date: 20150511
  Transmission Date: 20150821
  Serious: Yes (Death)
  Sender: FDA-Public Use
  Company Number: 2015NL003755

PATIENT
  Age: 85 Year
  Sex: Male

DRUGS (4)
  1. METOPROLOL [Concomitant]
     Active Substance: METOPROLOL
  2. PRAVASTATIN [Concomitant]
     Active Substance: PRAVASTATIN\PRAVASTATIN SODIUM
  3. ASCAL (ACETYLSALICYLATE CALCIUM) [Concomitant]
  4. ELIGARD [Suspect]
     Active Substance: LEUPROLIDE ACETATE
     Indication: PROSTATE CANCER
     Dosage: CYCLIC, ONCE EVERY 6 MONTHS

REACTIONS (1)
  - Terminal state [None]
